FAERS Safety Report 15602751 (Version 1)
Quarter: 2018Q4

REPORT INFORMATION
  Report Type: Spontaneous
  Country: US (occurrence: US)
  Receive Date: 20181109
  Receipt Date: 20181109
  Transmission Date: 20190205
  Serious: No
  Sender: FDA-Public Use
  Company Number: US-GLAXOSMITHKLINE-US2018199245

PATIENT
  Age: 50 Year
  Sex: Female

DRUGS (2)
  1. PREVACID [Suspect]
     Active Substance: LANSOPRAZOLE
     Indication: ULCER
     Dosage: UNK
     Route: 048
     Dates: start: 2010
  2. LANSOPRAZOLE. [Suspect]
     Active Substance: LANSOPRAZOLE
     Indication: PRODUCT USED FOR UNKNOWN INDICATION

REACTIONS (8)
  - Medication error [Unknown]
  - Abdominal pain upper [Unknown]
  - Gastric disorder [Unknown]
  - Off label use [Unknown]
  - Product availability issue [Unknown]
  - Product substitution issue [Unknown]
  - Intentional product misuse [Unknown]
  - Drug ineffective [Unknown]
